FAERS Safety Report 24836830 (Version 1)
Quarter: 2025Q1

REPORT INFORMATION
  Report Type: Spontaneous
  Country: CN (occurrence: CN)
  Receive Date: 20250113
  Receipt Date: 20250113
  Transmission Date: 20250409
  Serious: Yes (Other)
  Sender: BAXTER
  Company Number: None

PATIENT
  Age: 61 Year
  Sex: Female
  Weight: 55 kg

DRUGS (2)
  1. GLYCERIN\LECITHIN\TRIGLYCERIDES,UNSPECIFIED LENGTH\SOYBEAN OIL [Suspect]
     Active Substance: GLYCERIN\LECITHIN\TRIGLYCERIDES,UNSPECIFIED LENGTH\SOYBEAN OIL
     Indication: Malnutrition
     Route: 041
     Dates: start: 20241224, end: 20241224
  2. GLYCERIN\LECITHIN\TRIGLYCERIDES,UNSPECIFIED LENGTH\SOYBEAN OIL [Suspect]
     Active Substance: GLYCERIN\LECITHIN\TRIGLYCERIDES,UNSPECIFIED LENGTH\SOYBEAN OIL
     Indication: Nutritional supplementation

REACTIONS (4)
  - Skin discolouration [Recovering/Resolving]
  - Pallor [Recovering/Resolving]
  - Chills [Recovering/Resolving]
  - Blood pressure increased [Recovering/Resolving]

NARRATIVE: CASE EVENT DATE: 20241224
